FAERS Safety Report 7101201-4 (Version None)
Quarter: 2010Q4

REPORT INFORMATION
  Report Type: 
  Country: None (occurrence: None)
  Receive Date: 20101115
  Receipt Date: 20101108
  Transmission Date: 20110411
  Serious: Yes (Other)
  Sender: FDA-Public Use
  Company Number: US-SP-2010-04969

PATIENT
  Sex: Female

DRUGS (5)
  1. DAPTACEL [Suspect]
     Indication: IMMUNISATION
     Route: 030
     Dates: start: 20100909, end: 20100909
  2. IPOL [Suspect]
     Indication: IMMUNISATION
     Route: 030
     Dates: start: 20100909, end: 20100909
  3. TUBERSOL [Suspect]
     Indication: TUBERCULIN TEST
     Route: 058
     Dates: start: 20100909, end: 20100909
  4. M-M-R II [Suspect]
     Indication: IMMUNISATION
     Route: 030
     Dates: start: 20100909, end: 20100909
  5. PREVNAR [Suspect]
     Indication: IMMUNISATION
     Route: 065
     Dates: start: 20100909, end: 20100909

REACTIONS (5)
  - CELLULITIS [None]
  - EXTENSIVE SWELLING OF VACCINATED LIMB [None]
  - INFLAMMATION [None]
  - PAIN IN EXTREMITY [None]
  - VACCINATION SITE INFLAMMATION [None]
